FAERS Safety Report 8931804 (Version 2)
Quarter: 2012Q4

REPORT INFORMATION
  Report Type: Report from Study
  Country: US (occurrence: US)
  Receive Date: 20121128
  Receipt Date: 20121211
  Transmission Date: 20130627
  Serious: Yes (Hospitalization, Other)
  Sender: FDA-Public Use
  Company Number: US-ROCHE-1157263

PATIENT
  Age: 60 Year
  Sex: Female

DRUGS (18)
  1. MYCOPHENOLATE MOFETIL [Suspect]
     Indication: IMMUNOSUPPRESSION
     Route: 048
  2. BELATACEPT [Suspect]
     Indication: IMMUNOSUPPRESSION
     Route: 042
     Dates: start: 20061212
  3. PREDNISONE [Suspect]
     Indication: IMMUNOSUPPRESSION
     Route: 065
  4. LEXAPRO [Concomitant]
  5. HUMALOG [Concomitant]
  6. LANTUS [Concomitant]
  7. LEVOTHYROXINE SODIUM [Concomitant]
  8. METOPROLOL TARTRATE [Concomitant]
     Route: 065
  9. PROTONIX [Concomitant]
  10. PRAVACHOL [Concomitant]
  11. SULFAMETHOXAZOLE [Concomitant]
  12. ASPIRIN [Concomitant]
  13. CALCITRIOL [Concomitant]
     Route: 065
     Dates: start: 20121019
  14. HEPARIN [Concomitant]
  15. HYDROCORTISONE SODIUM SUCCINATE [Concomitant]
  16. INSULIN [Concomitant]
  17. PIPERACILLIN/TAZOBACTAM [Concomitant]
  18. PANTOPRAZOLE SODIUM [Concomitant]

REACTIONS (2)
  - Urosepsis [Recovered/Resolved]
  - Myocardial infarction [Unknown]
